FAERS Safety Report 7936084-3 (Version None)
Quarter: 2011Q4

REPORT INFORMATION
  Report Type: 
  Country: None (occurrence: None)
  Receive Date: 20111123
  Receipt Date: 20111116
  Transmission Date: 20120403
  Serious: Yes (Other)
  Sender: FDA-Public Use
  Company Number: JP-SHIRE-SPV1-2009-01416

PATIENT
  Sex: Male

DRUGS (5)
  1. LASIX [Concomitant]
     Dosage: 20 MG, 1X/DAY:QD
     Route: 048
     Dates: start: 20090312, end: 20090323
  2. URINORM [Suspect]
     Route: 048
  3. DIOVAN [Suspect]
     Dosage: 40 MG, UNK
     Route: 048
     Dates: end: 20090430
  4. AGALSIDASE ALFA [Suspect]
     Indication: FABRY'S DISEASE
     Dosage: 12 MG, 1X/2WKS
     Route: 041
     Dates: start: 20080515
  5. SODIUM BICARBONATE [Concomitant]
     Dosage: 3 G, 1X/DAY:QD
     Route: 048
     Dates: start: 20080811

REACTIONS (3)
  - BLOOD CREATININE INCREASED [None]
  - BLOOD UREA INCREASED [None]
  - DYSGEUSIA [None]
